FAERS Safety Report 4754195-0 (Version None)
Quarter: 2005Q3

REPORT INFORMATION
  Report Type: 
  Country: None (occurrence: None)
  Receive Date: 20050826
  Receipt Date: 20050811
  Transmission Date: 20060218
  Serious: Yes (Death, Hospitalization)
  Sender: FDA-Public Use
  Company Number: 200511318BWH

PATIENT
  Age: 65 Year
  Sex: Male

DRUGS (8)
  1. TRASYLOL [Suspect]
     Indication: AORTIC ANEURYSM
     Dates: start: 20050606
  2. MANNITOL [Concomitant]
  3. HEPARIN [Concomitant]
  4. PROTAMINE [Concomitant]
  5. LIDOCAINE [Concomitant]
  6. MAGNESIUM [Concomitant]
  7. CALCIUM GLUCONATE [Concomitant]
  8. METOPROLOL [Concomitant]

REACTIONS (12)
  - ANAEMIA [None]
  - BRADYCARDIA [None]
  - CARDIAC ARREST [None]
  - CARDIAC FAILURE [None]
  - CARDIOGENIC SHOCK [None]
  - CORONARY ARTERY OCCLUSION [None]
  - ELECTROLYTE IMBALANCE [None]
  - HYPOTENSION [None]
  - LUNG DISORDER [None]
  - MYOCARDIAL INFARCTION [None]
  - PLEURAL EFFUSION [None]
  - RENAL FAILURE ACUTE [None]
